FAERS Safety Report 7709989-6 (Version None)
Quarter: 2011Q3

REPORT INFORMATION
  Report Type: 
  Country: None (occurrence: None)
  Receive Date: 20110825
  Receipt Date: 20110812
  Transmission Date: 20111222
  Serious: Yes (Other)
  Sender: FDA-Public Use
  Company Number: PHHY2011PK74590

PATIENT
  Age: 25 Year
  Sex: Female

DRUGS (7)
  1. METOPROLOL TARTRATE [Suspect]
     Dosage: 25 MG, TID
  2. PROGESTERONE [Suspect]
     Dosage: UNK UKN, UNK
  3. LASORIDE [Suspect]
     Dosage: 40 MG, QD
  4. ASPIRIN [Suspect]
     Dosage: 75 MG, QD
  5. ATENOLOL [Suspect]
     Dosage: 25 MG, BID
  6. WARFARIN SODIUM [Suspect]
     Dosage: 2.5 MG, QD
  7. CLOPIDOGREL [Suspect]
     Dosage: 75 MG, QD

REACTIONS (4)
  - PLACENTAL INSUFFICIENCY [None]
  - PREMATURE LABOUR [None]
  - FOETAL GROWTH RESTRICTION [None]
  - MATERNAL EXPOSURE DURING PREGNANCY [None]
